FAERS Safety Report 23784206 (Version 1)
Quarter: 2024Q2

REPORT INFORMATION
  Report Type: Spontaneous
  Country: US (occurrence: None)
  Receive Date: 20240425
  Receipt Date: 20240425
  Transmission Date: 20240715
  Serious: No
  Sender: FDA-Public Use
  Company Number: None

PATIENT
  Age: 56 Year
  Sex: Female
  Weight: 77.85 kg

DRUGS (12)
  1. BOTULINUM TOXIN NOS [Suspect]
     Active Substance: BOTULINUM TOXIN NOS
     Indication: Migraine
     Route: 058
     Dates: start: 20240415
  2. CALCIUM [Concomitant]
     Active Substance: CALCIUM
  3. VITAMIN D [Concomitant]
  4. WELLBUTRIN [Concomitant]
     Active Substance: BUPROPION HYDROCHLORIDE
  5. METOPROLOL [Concomitant]
     Active Substance: METOPROLOL
  6. CHLONIDINE [Concomitant]
  7. PREGABALIN [Concomitant]
     Active Substance: PREGABALIN
  8. XANAX [Concomitant]
     Active Substance: ALPRAZOLAM
  9. VITAMIN B1 [Concomitant]
     Active Substance: THIAMINE HYDROCHLORIDE
  10. VITAMIN B12 [Concomitant]
     Active Substance: CYANOCOBALAMIN
  11. hair and nails vitamin [Concomitant]
  12. pro/prebiotic [Concomitant]

REACTIONS (10)
  - Headache [None]
  - Dysphagia [None]
  - Neck pain [None]
  - Dry mouth [None]
  - Sinus operation [None]
  - Anxiety [None]
  - Dysuria [None]
  - Urticaria [None]
  - Pruritus [None]
  - Dysphagia [None]

NARRATIVE: CASE EVENT DATE: 20240415
